FAERS Safety Report 24985585 (Version 5)
Quarter: 2025Q3

REPORT INFORMATION
  Report Type: Report from Study
  Country: AR (occurrence: AR)
  Receive Date: 20250219
  Receipt Date: 20250905
  Transmission Date: 20251020
  Serious: Yes (Other)
  Sender: AMGEN
  Company Number: AR-AMGEN-ARGSL2024204902

PATIENT
  Age: 59 Year
  Sex: Male

DRUGS (1)
  1. VECTIBIX [Suspect]
     Active Substance: PANITUMUMAB
     Indication: Colorectal cancer
     Route: 065
     Dates: start: 20240926

REACTIONS (13)
  - Cataract [Not Recovered/Not Resolved]
  - Neurogenic bladder [Unknown]
  - Gallbladder disorder [Unknown]
  - Procedural complication [Unknown]
  - Peripheral swelling [Unknown]
  - Photosensitivity reaction [Unknown]
  - Insomnia [Unknown]
  - Nausea [Unknown]
  - Vomiting [Unknown]
  - Abdominal discomfort [Unknown]
  - Nasopharyngitis [Unknown]
  - Muscle spasms [Unknown]
  - Blood albumin abnormal [Unknown]

NARRATIVE: CASE EVENT DATE: 20240101
